FAERS Safety Report 6000258-1 (Version None)
Quarter: 2008Q4

REPORT INFORMATION
  Report Type: 
  Country: None (occurrence: None)
  Receive Date: 20081215
  Receipt Date: 20081211
  Transmission Date: 20090506
  Serious: Yes (Hospitalization)
  Sender: FDA-Public Use
  Company Number: US-MERCK-0812USA01771

PATIENT
  Age: 61 Year
  Sex: Female

DRUGS (5)
  1. ZOCOR [Suspect]
     Indication: HYPERCHOLESTEROLAEMIA
     Route: 048
     Dates: start: 20030518
  2. ACIPHEX [Concomitant]
     Route: 065
  3. CHLORTHALIDONE [Concomitant]
     Route: 065
  4. POTASSIUM (UNSPECIFIED) [Concomitant]
     Route: 065
  5. ADVAIR DISKUS 250/50 [Concomitant]
     Route: 065

REACTIONS (1)
  - THYROID CANCER [None]
